FAERS Safety Report 5712238-1 (Version None)
Quarter: 2008Q2

REPORT INFORMATION
  Report Type: 
  Country: None (occurrence: None)
  Receive Date: 20080422
  Receipt Date: 20080411
  Transmission Date: 20081010
  Serious: Yes (Hospitalization)
  Sender: FDA-Public Use
  Company Number: ES-JNJFOC-20080404063

PATIENT
  Sex: Female

DRUGS (6)
  1. REMICADE [Suspect]
     Dosage: 3RD INFUSION
     Route: 042
  2. REMICADE [Suspect]
     Route: 042
  3. REMICADE [Suspect]
     Indication: COLITIS ULCERATIVE
     Route: 042
  4. POLARAMINE [Concomitant]
     Indication: PREMEDICATION
     Route: 065
  5. PARACETAMOL [Concomitant]
     Indication: PREMEDICATION
     Route: 065
  6. URBASON [Concomitant]
     Indication: PREMEDICATION
     Route: 065

REACTIONS (1)
  - ARTHRITIS [None]
